FAERS Safety Report 9858332 (Version 2)
Quarter: 2014Q1

REPORT INFORMATION
  Report Type: Spontaneous
  Country: US (occurrence: US)
  Receive Date: 20140131
  Receipt Date: 20140131
  Transmission Date: 20141002
  Serious: Yes (Other)
  Sender: FDA-Public Use
  Company Number: US-009507513-0705USA00951

PATIENT
  Sex: Female
  Weight: 59.87 kg

DRUGS (5)
  1. FOSAMAX PLUS D [Suspect]
     Indication: BONE DENSITY DECREASED
     Dosage: 70 MG/2800
     Route: 048
     Dates: start: 20070111, end: 20070429
  2. FOSAMAX PLUS D [Suspect]
     Indication: OSTEOPENIA
  3. FOSAMAX [Suspect]
     Indication: OSTEOPOROSIS
     Route: 048
  4. SONATA [Concomitant]
  5. LIPITOR [Concomitant]

REACTIONS (2)
  - Femur fracture [Unknown]
  - Calcinosis [Not Recovered/Not Resolved]
